FAERS Safety Report 4740351-4 (Version None)
Quarter: 2005Q3

REPORT INFORMATION
  Report Type: 
  Country: None (occurrence: None)
  Receive Date: 20050810
  Receipt Date: 20040305
  Transmission Date: 20060218
  Serious: No
  Sender: FDA-Public Use
  Company Number: US-GLAXOSMITHKLINE-A0502679A

PATIENT
  Sex: Female

DRUGS (4)
  1. PAXIL [Suspect]
     Indication: MAJOR DEPRESSION
     Dosage: 20MG IN THE MORNING
     Route: 048
     Dates: start: 19960616
  2. REMERON [Concomitant]
  3. WELLBUTRIN [Concomitant]
     Dosage: 300MG PER DAY
     Route: 048
  4. PROZAC [Concomitant]
     Dosage: 10MG PER DAY
     Route: 048
     Dates: start: 20040416

REACTIONS (5)
  - COLD SWEAT [None]
  - DIZZINESS [None]
  - DRUG WITHDRAWAL SYNDROME [None]
  - FATIGUE [None]
  - TREMOR [None]
